FAERS Safety Report 19140228 (Version 1)
Quarter: 2021Q2

REPORT INFORMATION
  Report Type: Spontaneous
  Country: CA (occurrence: CA)
  Receive Date: 20210415
  Receipt Date: 20210415
  Transmission Date: 20210717
  Serious: Yes (Hospitalization)
  Sender: FDA-Public Use
  Company Number: CA-PFIZER INC-2021381355

PATIENT
  Age: 67 Year
  Sex: Female
  Weight: 86 kg

DRUGS (13)
  1. DOCETAXEL. [Suspect]
     Active Substance: DOCETAXEL
     Indication: ADENOCARCINOMA GASTRIC
  2. OXALIPLATIN. [Suspect]
     Active Substance: OXALIPLATIN
     Indication: ADENOCARCINOMA GASTRIC
  3. FLUOROURACIL. [Suspect]
     Active Substance: FLUOROURACIL
     Indication: ADENOCARCINOMA GASTRIC
  4. IRBESARTAN. [Concomitant]
     Active Substance: IRBESARTAN
     Route: 065
  5. SOTALOL. [Concomitant]
     Active Substance: SOTALOL
  6. DEXILANT [Concomitant]
     Active Substance: DEXLANSOPRAZOLE
  7. DILAUDID [Concomitant]
     Active Substance: HYDROMORPHONE HYDROCHLORIDE
  8. IRON [Concomitant]
     Active Substance: IRON
  9. ELIQUIS [Concomitant]
     Active Substance: APIXABAN
  10. FLURAZEPAM HYDROCHLORIDE. [Concomitant]
     Active Substance: FLURAZEPAM HYDROCHLORIDE
  11. FOLIC ACID. [Suspect]
     Active Substance: FOLIC ACID
     Indication: ADENOCARCINOMA GASTRIC
  12. CRESTOR [Concomitant]
     Active Substance: ROSUVASTATIN CALCIUM
  13. PROCHLORPERAZINE. [Concomitant]
     Active Substance: PROCHLORPERAZINE

REACTIONS (2)
  - Febrile neutropenia [Recovered/Resolved]
  - Enteritis [Recovered/Resolved]
